FAERS Safety Report 12480471 (Version 1)
Quarter: 2016Q2

REPORT INFORMATION
  Report Type: Spontaneous
  Country: BR (occurrence: BR)
  Receive Date: 20160620
  Receipt Date: 20160620
  Transmission Date: 20160815
  Serious: Yes (Other)
  Sender: FDA-Public Use
  Company Number: BR-ELI_LILLY_AND_COMPANY-BR201606003271

PATIENT
  Sex: Female
  Weight: 73 kg

DRUGS (7)
  1. HUMALOG [Suspect]
     Active Substance: INSULIN LISPRO
     Dosage: 12 IU, EACH EVENING
     Route: 058
  2. HUMAN INSULIN [Suspect]
     Active Substance: INSULIN HUMAN
     Dosage: 14 IU, AT LUNCH
     Route: 058
  3. HUMAN INSULIN [Suspect]
     Active Substance: INSULIN HUMAN
     Indication: TYPE 1 DIABETES MELLITUS
     Dosage: 48 IU, EACH MORNING
     Route: 058
  4. HUMALOG [Suspect]
     Active Substance: INSULIN LISPRO
     Indication: TYPE 1 DIABETES MELLITUS
     Dosage: 8 IU, EACH MORNING
     Route: 058
  5. HUMAN INSULIN [Suspect]
     Active Substance: INSULIN HUMAN
     Dosage: 38 IU, EACH EVENING
     Route: 058
  6. CYMBALTA [Concomitant]
     Active Substance: DULOXETINE HYDROCHLORIDE
     Indication: FIBROMYALGIA
     Dosage: UNK, UNKNOWN
     Route: 065
  7. PREGABALINA [Concomitant]
     Active Substance: PREGABALIN
     Indication: FIBROMYALGIA
     Dosage: UNK, UNKNOWN
     Route: 065

REACTIONS (3)
  - Injection site induration [Unknown]
  - Injection site pain [Unknown]
  - Renal impairment [Not Recovered/Not Resolved]

NARRATIVE: CASE EVENT DATE: 2010
